FAERS Safety Report 9641689 (Version 2)
Quarter: 2013Q4

REPORT INFORMATION
  Report Type: Spontaneous
  Country: AU (occurrence: AU)
  Receive Date: 20131023
  Receipt Date: 20131030
  Transmission Date: 20140711
  Serious: Yes (Other)
  Sender: FDA-Public Use
  Company Number: AU-BAYER-2013-128658

PATIENT
  Age: 35 Year
  Sex: Female

DRUGS (1)
  1. MIRENA [Suspect]
     Indication: MENSTRUAL DISORDER
     Dosage: 20 MCG/24HR, CONT
     Route: 015
     Dates: start: 2007

REACTIONS (3)
  - Breast cancer metastatic [None]
  - Metastases to liver [None]
  - Metastases to bone [None]
